FAERS Safety Report 6715590-3 (Version None)
Quarter: 2010Q2

REPORT INFORMATION
  Report Type: 
  Country: None (occurrence: None)
  Receive Date: 20100506
  Receipt Date: 20100506
  Transmission Date: 20101027
  Serious: Yes (Hospitalization, Other)
  Sender: FDA-Public Use
  Company Number: None

PATIENT
  Age: 68 Year
  Sex: Female
  Weight: 83 kg

DRUGS (3)
  1. HEPARIN [Suspect]
     Indication: THROMBOSIS PROPHYLAXIS
     Dosage: 15000 UNITS ONCE IV
     Route: 042
     Dates: start: 20100208
  2. CEFAZOLIN [Concomitant]
  3. RANITIDNE [Concomitant]

REACTIONS (1)
  - INCISION SITE HAEMORRHAGE [None]
